FAERS Safety Report 4756922-5 (Version None)
Quarter: 2005Q3

REPORT INFORMATION
  Report Type: 
  Country: None (occurrence: None)
  Receive Date: 20050830
  Receipt Date: 20050621
  Transmission Date: 20060218
  Serious: Yes (Other)
  Sender: FDA-Public Use
  Company Number: DK-JNJFOC-20050303495

PATIENT
  Age: 64 Year
  Sex: Female
  Weight: 74 kg

DRUGS (6)
  1. REMICADE [Suspect]
     Indication: RHEUMATOID ARTHRITIS
     Route: 042
  2. IMUREL [Concomitant]
     Indication: ARTHRITIS
     Dosage: 1-2 DOSES PER DAY
     Route: 048
  3. BRUFEN [Concomitant]
     Indication: ARTHRITIS
     Dosage: 1-3 DOSES DAILY, STARTED PRIOR TO 2004
     Route: 048
  4. ALPRAZOLAM [Concomitant]
     Dosage: INITIATED BEFORE 2004.
     Route: 048
  5. AZATHIOPRINE [Concomitant]
     Route: 048
  6. BEXTRA [Concomitant]

REACTIONS (1)
  - MYELODYSPLASTIC SYNDROME [None]
